FAERS Safety Report 19873056 (Version 2)
Quarter: 2022Q3

REPORT INFORMATION
  Report Type: Spontaneous
  Country: FR (occurrence: FR)
  Receive Date: 20210922
  Receipt Date: 20220802
  Transmission Date: 20221027
  Serious: Yes (Death, Other)
  Sender: FDA-Public Use
  Company Number: FR-CELLTRION HEALTHCARE HUNGARY KFT-2021FR004317

PATIENT

DRUGS (4)
  1. TRASTUZUMAB [Suspect]
     Active Substance: TRASTUZUMAB
     Indication: Breast cancer
     Dosage: 6MG/KG EVERY 3 WEEKS (MAINTENANCE TREATMENT)
     Route: 065
  2. DOCETAXEL [Suspect]
     Active Substance: DOCETAXEL
     Indication: Breast cancer
     Dosage: UNK
     Route: 065
  3. PERTUZUMAB [Suspect]
     Active Substance: PERTUZUMAB
     Indication: Breast cancer
     Dosage: 420MG (MAINTENANCE TREATMENT)
     Route: 065
  4. PERTUZUMAB [Suspect]
     Active Substance: PERTUZUMAB
     Dosage: 840 MILLIGRAM (LOADING DOSE)
     Route: 065

REACTIONS (11)
  - Breast cancer [Fatal]
  - Disease progression [Fatal]
  - Telangiectasia [Unknown]
  - Breast cancer recurrent [Unknown]
  - Radiation skin injury [Unknown]
  - Fatigue [Unknown]
  - Oesophagitis [Recovered/Resolved]
  - Cardiotoxicity [Unknown]
  - Ejection fraction decreased [Recovered/Resolved]
  - Asthenia [Unknown]
  - Therapeutic response decreased [Unknown]
